FAERS Safety Report 4884771-6 (Version None)
Quarter: 2006Q1

REPORT INFORMATION
  Report Type: 
  Country: None (occurrence: None)
  Receive Date: 20060117
  Receipt Date: 20060104
  Transmission Date: 20060701
  Serious: Yes (Death)
  Sender: FDA-Public Use
  Company Number: HQWYE248609JAN06

PATIENT
  Sex: Male

DRUGS (1)
  1. EFFEXOR [Suspect]

REACTIONS (6)
  - COMPLETED SUICIDE [None]
  - DEPRESSION [None]
  - MENTAL IMPAIRMENT [None]
  - PAIN [None]
  - POLYTRAUMATISM [None]
  - SUICIDAL IDEATION [None]
